FAERS Safety Report 4449555-1 (Version None)
Quarter: 2004Q3

REPORT INFORMATION
  Report Type: 
  Country: None (occurrence: None)
  Receive Date: 20040913
  Receipt Date: 20040827
  Transmission Date: 20050211
  Serious: Yes (Other)
  Sender: FDA-Public Use
  Company Number: 702077

PATIENT
  Age: 54 Year
  Sex: Male
  Weight: 78.2 kg

DRUGS (2)
  1. ALEFACEPT [Suspect]
     Indication: PSORIASIS
     Dosage: 15 MG QW IM
     Route: 030
     Dates: start: 20030514, end: 20030730
  2. REMICADE [Concomitant]

REACTIONS (4)
  - ANAPLASTIC LARGE CELL LYMPHOMA T- AND NULL-CELL TYPES [None]
  - LIVER FUNCTION TEST ABNORMAL [None]
  - LYMPHOMATOID PAPULOSIS [None]
  - OFF LABEL USE [None]
